FAERS Safety Report 5153127-3 (Version None)
Quarter: 2006Q4

REPORT INFORMATION
  Report Type: 
  Country: None (occurrence: None)
  Receive Date: 20061117
  Receipt Date: 20061003
  Transmission Date: 20070319
  Serious: Yes (Other)
  Sender: FDA-Public Use
  Company Number: FR-GLAXOSMITHKLINE-B0441199A

PATIENT
  Age: 71 Year
  Sex: Female
  Weight: 60 kg

DRUGS (10)
  1. ARIXTRA [Suspect]
     Indication: THROMBOSIS PROPHYLAXIS
     Dosage: 2.5MG PER DAY
     Route: 058
     Dates: start: 20060901
  2. RADIOTHERAPY [Suspect]
     Indication: METASTASIS
     Dates: start: 20060906, end: 20060906
  3. ZOFRAN [Concomitant]
  4. XANAX [Concomitant]
     Indication: ANXIETY
     Dosage: .25MG THREE TIMES PER DAY
     Route: 048
  5. NEURONTIN [Concomitant]
     Indication: PAIN
     Dosage: 400MG THREE TIMES PER DAY
     Route: 048
  6. MOVICOL [Concomitant]
     Indication: PROPHYLAXIS
     Dosage: 2SAC THREE TIMES PER DAY
     Route: 048
  7. ARIMIDEX [Concomitant]
     Indication: BREAST CANCER METASTATIC
     Dosage: 1UNIT PER DAY
     Route: 048
  8. SOLU-MEDROL [Concomitant]
     Indication: PAIN
     Dosage: 60MG PER DAY
     Route: 042
  9. SPASFON [Concomitant]
  10. MORPHINE [Concomitant]
     Indication: PAIN
     Route: 042

REACTIONS (6)
  - ANAEMIA [None]
  - ASTHENIA [None]
  - LEUKOPENIA [None]
  - PALLOR [None]
  - PANCYTOPENIA [None]
  - THROMBOCYTOPENIA [None]
